FAERS Safety Report 19749341 (Version 1)
Quarter: 2021Q3

REPORT INFORMATION
  Report Type: Spontaneous
  Country: JP (occurrence: JP)
  Receive Date: 20210826
  Receipt Date: 20210826
  Transmission Date: 20211014
  Serious: Yes (Other)
  Sender: FDA-Public Use
  Company Number: JP-MACLEODS PHARMACEUTICALS US LTD-MAC2021032435

PATIENT

DRUGS (3)
  1. LEVOFLOXACIN. [Suspect]
     Active Substance: LEVOFLOXACIN
     Indication: URINARY TRACT INFECTION
     Dosage: UNK
     Route: 065
  2. CIPROFLOXACIN. [Suspect]
     Active Substance: CIPROFLOXACIN
     Indication: URINARY TRACT INFECTION
     Dosage: UNK
     Route: 065
  3. PARACETAMOL [Suspect]
     Active Substance: ACETAMINOPHEN
     Indication: URINARY TRACT INFECTION
     Dosage: UNK
     Route: 065

REACTIONS (9)
  - Oral mucosa erosion [Recovered/Resolved]
  - Epidermal necrosis [Recovered/Resolved]
  - Erythema [Recovered/Resolved]
  - Vulvar erosion [Recovered/Resolved]
  - Skin abrasion [Recovered/Resolved]
  - Skin erosion [Recovered/Resolved]
  - Lip erosion [Recovered/Resolved]
  - Nikolsky^s sign [Recovered/Resolved]
  - Dermatitis [Recovered/Resolved]
